FAERS Safety Report 20577596 (Version 1)
Quarter: 2022Q1

REPORT INFORMATION
  Report Type: Spontaneous
  Country: US (occurrence: None)
  Receive Date: 20220310
  Receipt Date: 20220310
  Transmission Date: 20220424
  Serious: No
  Sender: FDA-Public Use
  Company Number: None

PATIENT
  Age: 54 Year
  Sex: Male
  Weight: 126 kg

DRUGS (1)
  1. PIOGLITAZONE [Suspect]
     Active Substance: PIOGLITAZONE
     Indication: Diabetes mellitus
     Dosage: FREQUENCY : DAILY;?
     Route: 048
     Dates: start: 20220131, end: 20220228

REACTIONS (2)
  - Pollakiuria [None]
  - Headache [None]

NARRATIVE: CASE EVENT DATE: 20220228
